FAERS Safety Report 7815663-8 (Version None)
Quarter: 2011Q3

REPORT INFORMATION
  Report Type: 
  Country: None (occurrence: None)
  Receive Date: 20110929
  Receipt Date: 20110921
  Transmission Date: 20111222
  Serious: Yes (Hospitalization)
  Sender: FDA-Public Use
  Company Number: 003-057

PATIENT
  Sex: Female

DRUGS (2)
  1. CROFAB [Suspect]
     Indication: SNAKE BITE
     Dosage: 6 VIALS Q6H X 2, 2 VIALS Q6H X 3, ADDITIONAL 6 VIALS X 1
     Dates: start: 20110806, end: 20110812
  2. CROFAB [Suspect]

REACTIONS (6)
  - PROTHROMBIN TIME PROLONGED [None]
  - BLOOD FIBRINOGEN DECREASED [None]
  - PLATELET COUNT DECREASED [None]
  - INTERNATIONAL NORMALISED RATIO INCREASED [None]
  - ACTIVATED PARTIAL THROMBOPLASTIN TIME PROLONGED [None]
  - INTERNATIONAL NORMALISED RATIO DECREASED [None]
